FAERS Safety Report 22181356 (Version 1)
Quarter: 2023Q2

REPORT INFORMATION
  Report Type: Spontaneous
  Country: US (occurrence: None)
  Receive Date: 20230406
  Receipt Date: 20230406
  Transmission Date: 20230721
  Serious: Yes (Other)
  Sender: FDA-Public Use
  Company Number: None

PATIENT
  Age: 36 Year
  Sex: Female

DRUGS (2)
  1. NIACOR [Suspect]
     Active Substance: NIACIN
     Indication: Hypertriglyceridaemia
     Route: 065
  2. OMEGA-3 FATTY ACIDS [Suspect]
     Active Substance: OMEGA-3 FATTY ACIDS
     Indication: Hypertriglyceridaemia
     Route: 065

REACTIONS (2)
  - Maternal exposure during pregnancy [None]
  - Drug ineffective [None]
